FAERS Safety Report 17943038 (Version 1)
Quarter: 2020Q2

REPORT INFORMATION
  Report Type: Report from Study
  Country: CA (occurrence: CA)
  Receive Date: 20200625
  Receipt Date: 20200625
  Transmission Date: 20200714
  Serious: Yes (Other)
  Sender: FDA-Public Use
  Company Number: PHHY2016CA024654

PATIENT
  Age: 79 Year
  Sex: Male

DRUGS (3)
  1. ZOMETA [Suspect]
     Active Substance: ZOLEDRONIC ACID
     Dosage: UNK
     Route: 042
     Dates: start: 20200619
  2. ZOMETA [Suspect]
     Active Substance: ZOLEDRONIC ACID
     Indication: PLASMA CELL MYELOMA
     Dosage: 4 MG, QMO
     Route: 042
     Dates: start: 20160204
  3. ZOMETA [Suspect]
     Active Substance: ZOLEDRONIC ACID
     Dosage: 4 MG, Q3MO
     Route: 042

REACTIONS (7)
  - Lung neoplasm malignant [Unknown]
  - General physical health deterioration [Unknown]
  - Inappropriate schedule of product administration [Unknown]
  - Anxiety [Unknown]
  - Bone pain [Unknown]
  - Blood calcium decreased [Unknown]
  - Mobility decreased [Unknown]

NARRATIVE: CASE EVENT DATE: 2017
